FAERS Safety Report 19694711 (Version 6)
Quarter: 2022Q1

REPORT INFORMATION
  Report Type: Report from Study
  Country: US (occurrence: US)
  Receive Date: 20210812
  Receipt Date: 20220307
  Transmission Date: 20220423
  Serious: Yes (Hospitalization)
  Sender: FDA-Public Use
  Company Number: US-NOVARTISPH-NVSC2021US169992

PATIENT
  Age: 53 Year
  Sex: Female

DRUGS (1)
  1. KESIMPTA [Suspect]
     Active Substance: OFATUMUMAB
     Indication: Product used for unknown indication
     Dosage: 20 MG, QMO (SUBCUTANEOUS- BENEATH THE SKIN, USUALLY VIA INJECTION)
     Route: 058
     Dates: start: 20210521

REACTIONS (6)
  - Bronchitis [Recovering/Resolving]
  - Cough [Recovering/Resolving]
  - Dysphonia [Unknown]
  - Lung disorder [Unknown]
  - Throat tightness [Unknown]
  - Chronic obstructive pulmonary disease [Recovering/Resolving]

NARRATIVE: CASE EVENT DATE: 20210712
